FAERS Safety Report 15188849 (Version 1)
Quarter: 2018Q3

REPORT INFORMATION
  Report Type: Spontaneous
  Country: MX (occurrence: MX)
  Receive Date: 20180724
  Receipt Date: 20180724
  Transmission Date: 20181010
  Serious: Yes (Hospitalization, Other)
  Sender: FDA-Public Use
  Company Number: MX-ROCHE-2158666

PATIENT
  Age: 53 Year
  Sex: Female

DRUGS (1)
  1. XOLAIR [Suspect]
     Active Substance: OMALIZUMAB
     Indication: ASTHMA
     Route: 065

REACTIONS (16)
  - Arthralgia [Unknown]
  - Asthma [Unknown]
  - Inflammation [Unknown]
  - Food allergy [Unknown]
  - Pain in extremity [Unknown]
  - Rheumatoid factor increased [Unknown]
  - Dust allergy [Unknown]
  - Hypokinesia [Unknown]
  - Fibrosis [Unknown]
  - Allergy to animal [Unknown]
  - Seasonal allergy [Unknown]
  - Allergy to plants [Unknown]
  - C-reactive protein increased [Unknown]
  - Blood immunoglobulin E increased [Unknown]
  - Influenza [Unknown]
  - Hypersensitivity [Unknown]

NARRATIVE: CASE EVENT DATE: 201702
